FAERS Safety Report 12280992 (Version 3)
Quarter: 2017Q4

REPORT INFORMATION
  Report Type: Report from Study
  Country: JP (occurrence: JP)
  Receive Date: 20160419
  Receipt Date: 20171006
  Transmission Date: 20180320
  Serious: Yes (Hospitalization, Other)
  Sender: FDA-Public Use
  Company Number: JP-JNJFOC-20160413912

PATIENT
  Age: 49 Year
  Sex: Male
  Weight: 61 kg

DRUGS (4)
  1. YONDELIS [Suspect]
     Active Substance: TRABECTEDIN
     Indication: CLEAR CELL SARCOMA OF SOFT TISSUE
     Dosage: CYCLE 1, A 24-HOUR INFUSION
     Route: 042
     Dates: start: 20160201
  2. DEXAMETHASONE. [Concomitant]
     Active Substance: DEXAMETHASONE
     Indication: PREMEDICATION
     Route: 065
  3. YONDELIS [Suspect]
     Active Substance: TRABECTEDIN
     Indication: CLEAR CELL SARCOMA OF SOFT TISSUE
     Route: 042
     Dates: start: 20160308
  4. YONDELIS [Suspect]
     Active Substance: TRABECTEDIN
     Indication: CLEAR CELL SARCOMA OF SOFT TISSUE
     Route: 042
     Dates: start: 20160411

REACTIONS (4)
  - Nausea [Unknown]
  - Influenza [Recovered/Resolved]
  - Neutrophil count decreased [Recovered/Resolved]
  - Liver disorder [Recovered/Resolved]

NARRATIVE: CASE EVENT DATE: 201602
